FAERS Safety Report 19194800 (Version 5)
Quarter: 2021Q3

REPORT INFORMATION
  Report Type: Report from Study
  Country: US (occurrence: US)
  Receive Date: 20210429
  Receipt Date: 20210706
  Transmission Date: 20211014
  Serious: Yes (Hospitalization, Other)
  Sender: FDA-Public Use
  Company Number: US-GLAXOSMITHKLINE-US2021AMR085371

PATIENT
  Age: 67 Year
  Sex: Female
  Weight: 72.56 kg

DRUGS (2)
  1. NIRAPARIB [Suspect]
     Active Substance: NIRAPARIB
     Indication: MALIGNANT PERITONEAL NEOPLASM
     Dosage: 200 MG, QD
     Dates: start: 20210408
  2. NIRAPARIB [Suspect]
     Active Substance: NIRAPARIB
     Dosage: 200 MG, QD
     Route: 048

REACTIONS (10)
  - Intestinal obstruction [Unknown]
  - Dermatitis allergic [Unknown]
  - Constipation [Recovering/Resolving]
  - Nausea [Recovered/Resolved]
  - Surgery [Unknown]
  - Vomiting [Unknown]
  - Fatigue [Unknown]
  - Product dose omission issue [Unknown]
  - Insomnia [Recovering/Resolving]
  - Off label use [Unknown]

NARRATIVE: CASE EVENT DATE: 20210408
